FAERS Safety Report 4592250-9 (Version None)
Quarter: 2005Q1

REPORT INFORMATION
  Report Type: 
  Country: None (occurrence: None)
  Receive Date: 20050228
  Receipt Date: 20041104
  Transmission Date: 20050727
  Serious: Yes (Other)
  Sender: FDA-Public Use
  Company Number: US-BRISTOL-MYERS SQUIBB COMPANY-12755971

PATIENT
  Age: 14 Year
  Sex: Male
  Weight: 54 kg

DRUGS (4)
  1. ABILIFY [Suspect]
     Indication: BIPOLAR DISORDER
     Dosage: 15 MG/DAY INITIATED IN OCT-03; INC TO 30 MG/DAY ON 26-APR-04.
     Route: 048
     Dates: start: 20031001
  2. ABILIFY [Suspect]
     Indication: SCHIZOID PERSONALITY DISORDER
     Dosage: 15 MG/DAY INITIATED IN OCT-03; INC TO 30 MG/DAY ON 26-APR-04.
     Route: 048
     Dates: start: 20031001
  3. LITHIUM [Concomitant]
     Indication: DEPRESSION
     Dates: start: 20040201
  4. WELLBUTRIN [Concomitant]
     Indication: DEPRESSION
     Route: 048
     Dates: start: 20040301

REACTIONS (5)
  - ANOREXIA [None]
  - CHOLELITHIASIS [None]
  - CONSTIPATION [None]
  - VIRAL INFECTION [None]
  - WEIGHT DECREASED [None]
